FAERS Safety Report 14115730 (Version 1)
Quarter: 2017Q4

REPORT INFORMATION
  Report Type: Spontaneous
  Country: GB (occurrence: GB)
  Receive Date: 20171023
  Receipt Date: 20171023
  Transmission Date: 20180321
  Serious: Yes (Disabling, Other)
  Sender: FDA-Public Use
  Company Number: GB-PFIZER INC-2017451339

PATIENT
  Sex: Female

DRUGS (3)
  1. CIPROFLOXACIN HCL [Suspect]
     Active Substance: CIPROFLOXACIN HYDROCHLORIDE
     Indication: LUNG INFECTION
     Dosage: 500 MG/DL, UNK
  2. CIPROFLOXACIN HCL [Suspect]
     Active Substance: CIPROFLOXACIN HYDROCHLORIDE
     Indication: LOWER RESPIRATORY TRACT INFECTION
  3. PREDNISOLONE. [Concomitant]
     Active Substance: PREDNISOLONE
     Indication: LOWER RESPIRATORY TRACT INFECTION
     Dosage: UNK

REACTIONS (15)
  - Fatigue [Unknown]
  - Impaired work ability [Not Recovered/Not Resolved]
  - Bone pain [Unknown]
  - Groin pain [Unknown]
  - Hypoaesthesia [Unknown]
  - Asthenia [Unknown]
  - Arthralgia [Unknown]
  - Visual impairment [Unknown]
  - General physical health deterioration [Unknown]
  - Myalgia [Unknown]
  - Paraesthesia [Unknown]
  - Burning sensation [Not Recovered/Not Resolved]
  - Neuropathy peripheral [Not Recovered/Not Resolved]
  - Pain [Not Recovered/Not Resolved]
  - Pain [Unknown]
